FAERS Safety Report 11651670 (Version 2)
Quarter: 2015Q4

REPORT INFORMATION
  Report Type: Report from Study
  Country: DE (occurrence: DE)
  Receive Date: 20151022
  Receipt Date: 20151030
  Transmission Date: 20160304
  Serious: Yes (Other)
  Sender: FDA-Public Use
  Company Number: DE-ACTELION-A-CH2015-121892

PATIENT
  Age: 53 Year
  Sex: Male
  Weight: 93 kg

DRUGS (10)
  1. PREDNISOLON [Concomitant]
     Active Substance: PREDNISOLONE
     Indication: SYSTEMIC SCLEROSIS
     Dosage: 10 MG, OD
     Route: 048
     Dates: start: 2007
  2. TRACLEER [Suspect]
     Active Substance: BOSENTAN
     Dosage: 125 MG, BID
     Route: 048
     Dates: start: 20140801
  3. ENDOXAN [Suspect]
     Active Substance: CYCLOPHOSPHAMIDE
     Indication: SYSTEMIC SCLEROSIS
     Dosage: UNK
     Route: 048
     Dates: start: 201312, end: 20140423
  4. TRACLEER [Suspect]
     Active Substance: BOSENTAN
     Dosage: 62.5 MG, BID
     Route: 048
     Dates: start: 20120221, end: 20120321
  5. QUENSYL [Concomitant]
     Active Substance: HYDROXYCHLOROQUINE
     Indication: RHEUMATOID ARTHRITIS
     Dosage: 900 MG, OD
     Route: 048
     Dates: start: 201008
  6. AMITRIPTYLINE [Concomitant]
     Active Substance: AMITRIPTYLINE
     Indication: DEPRESSION
     Dosage: 100 MG, OD
     Route: 048
  7. TRACLEER [Suspect]
     Active Substance: BOSENTAN
     Indication: SCLERODERMA ASSOCIATED DIGITAL ULCER
     Dosage: 125 MG, BID
     Route: 048
     Dates: start: 20120131, end: 20120220
  8. TRACLEER [Suspect]
     Active Substance: BOSENTAN
     Dosage: 125 MG, BID
     Route: 048
     Dates: start: 20120322, end: 201405
  9. NOVAMIN [Concomitant]
     Active Substance: PROCHLORPERAZINE MALEATE
     Indication: PAIN
     Dosage: 125 MG, OD
     Route: 048
  10. PANTOPRAZOL [Concomitant]
     Active Substance: PANTOPRAZOLE SODIUM
     Indication: GASTROOESOPHAGEAL REFLUX DISEASE
     Dosage: 20 MG, OD
     Route: 048

REACTIONS (17)
  - Haemorrhage [Unknown]
  - Drug interaction [Unknown]
  - Iron deficiency [Unknown]
  - Infection [Unknown]
  - Haematocrit decreased [Unknown]
  - Red blood cell count decreased [Unknown]
  - Alanine aminotransferase increased [Recovered/Resolved]
  - Exercise tolerance decreased [Unknown]
  - Aspartate aminotransferase increased [Recovered/Resolved]
  - Cardiac failure [Unknown]
  - Pleural effusion [Unknown]
  - Cardiomegaly [Unknown]
  - Dyspnoea [Unknown]
  - Pyrexia [Unknown]
  - Gamma-glutamyltransferase increased [Unknown]
  - Oedema peripheral [Unknown]
  - Microcytic anaemia [Unknown]

NARRATIVE: CASE EVENT DATE: 201402
